FAERS Safety Report 7846729-4 (Version None)
Quarter: 2011Q4

REPORT INFORMATION
  Report Type: 
  Country: None (occurrence: None)
  Receive Date: 20111025
  Receipt Date: 20111019
  Transmission Date: 20120403
  Serious: Yes (Hospitalization)
  Sender: FDA-Public Use
  Company Number: PHHY2011FR92476

PATIENT
  Sex: Male

DRUGS (8)
  1. STALEVO 100 [Suspect]
     Indication: PARKINSON'S DISEASE
     Dosage: 200/150/37.5, 4DF DAILY
     Dates: start: 20060101
  2. LEVOTHYROXINE SODIUM [Concomitant]
     Dosage: 50 UG, QD
  3. DEPAKENE [Suspect]
     Dosage: 500 MG, QD
  4. MIRTAZAPINE [Suspect]
     Dosage: 15 MG, QD
  5. CORDARONE [Suspect]
     Dosage: 1 DF, QD
  6. DUPHALAC [Concomitant]
     Dosage: 2 DF, QD
  7. PLAVIX [Concomitant]
     Dosage: 75 MG, QD
  8. AMLODIPINE BESYLATE [Concomitant]
     Dosage: 5 MG, QD

REACTIONS (7)
  - POSTURE ABNORMAL [None]
  - ESSENTIAL TREMOR [None]
  - INTENTION TREMOR [None]
  - HYPERTONIA [None]
  - PARKINSONIAN REST TREMOR [None]
  - DYSPHAGIA [None]
  - MUSCLE SPASTICITY [None]
